FAERS Safety Report 16201424 (Version 5)
Quarter: 2020Q4

REPORT INFORMATION
  Report Type: Report from Study
  Country: FR (occurrence: FR)
  Receive Date: 20190416
  Receipt Date: 20201019
  Transmission Date: 20210113
  Serious: Yes (Hospitalization)
  Sender: FDA-Public Use
  Company Number: FR-ROCHE-2302015

PATIENT
  Age: 44 Year
  Sex: Male

DRUGS (5)
  1. SMECTA [Concomitant]
     Active Substance: MONTMORILLONITE
  2. CLARADOL [Concomitant]
     Active Substance: ACETAMINOPHEN
  3. TIORFAN [Concomitant]
     Active Substance: RACECADOTRIL
  4. COBIMETINIB. [Suspect]
     Active Substance: COBIMETINIB
     Indication: MALIGNANT MELANOMA
     Dosage: MOST RECENT DOSE PRIOR TO EVENT ON 08/APR/2019
     Route: 048
     Dates: start: 20181124
  5. VEMURAFENIB. [Suspect]
     Active Substance: VEMURAFENIB
     Indication: MALIGNANT MELANOMA
     Dosage: MOST RECENT DOSE PRIOR TO EVENT ON 08/APR/2019
     Route: 048
     Dates: start: 20181123

REACTIONS (1)
  - Dermo-hypodermitis [Not Recovered/Not Resolved]

NARRATIVE: CASE EVENT DATE: 20190409
